FAERS Safety Report 20631909 (Version 2)
Quarter: 2022Q2

REPORT INFORMATION
  Report Type: Spontaneous
  Country: US (occurrence: None)
  Receive Date: 20220324
  Receipt Date: 20220419
  Transmission Date: 20220721
  Serious: No
  Sender: FDA-Public Use
  Company Number: 2022A084902

PATIENT
  Age: 988 Month
  Sex: Male
  Weight: 63.5 kg

DRUGS (1)
  1. IMFINZI [Suspect]
     Active Substance: DURVALUMAB
     Indication: Non-small cell lung cancer
     Dosage: PRESCRIBED IMFINZI, INFUSION, MONTHLY, FOR SMALL CELL LUNG CANCER, SINCE 2021
     Route: 042
     Dates: start: 2021

REACTIONS (6)
  - Depression [Unknown]
  - Mental disorder [Unknown]
  - Hypoacusis [Unknown]
  - Fatigue [Unknown]
  - Rash [Unknown]
  - Pruritus [Not Recovered/Not Resolved]

NARRATIVE: CASE EVENT DATE: 20211201
